FAERS Safety Report 26028269 (Version 2)
Quarter: 2025Q4

REPORT INFORMATION
  Report Type: Spontaneous
  Country: CA (occurrence: CA)
  Receive Date: 20251111
  Receipt Date: 20251117
  Transmission Date: 20260118
  Serious: Yes (Other)
  Sender: GILEAD
  Company Number: CA-GILEAD-2025-0735812

PATIENT
  Age: 29 Year
  Sex: Female

DRUGS (1)
  1. YESCARTA [Suspect]
     Active Substance: AXICABTAGENE CILOLEUCEL
     Indication: Diffuse large B-cell lymphoma
     Dosage: UNK
     Route: 065

REACTIONS (4)
  - Bronchopulmonary aspergillosis [Unknown]
  - Cytokine release syndrome [Unknown]
  - Neutropenia [Unknown]
  - Hypogammaglobulinaemia [Unknown]
